FAERS Safety Report 22157610 (Version 1)
Quarter: 2023Q1

REPORT INFORMATION
  Report Type: Spontaneous
  Country: CA (occurrence: CA)
  Receive Date: 20230330
  Receipt Date: 20230330
  Transmission Date: 20230418
  Serious: Yes (Other)
  Sender: FDA-Public Use
  Company Number: CA-Covis Pharma Europe B.V.-2023COV00697

PATIENT
  Sex: Male

DRUGS (4)
  1. ALVESCO [Suspect]
     Active Substance: CICLESONIDE
     Indication: Product used for unknown indication
  2. ALVESCO [Suspect]
     Active Substance: CICLESONIDE
  3. ALVESCO [Suspect]
     Active Substance: CICLESONIDE
  4. ALVESCO [Suspect]
     Active Substance: CICLESONIDE

REACTIONS (3)
  - Drug ineffective [Unknown]
  - Dyspnoea [Unknown]
  - Device issue [Unknown]
